FAERS Safety Report 4386914-X (Version None)
Quarter: 2004Q2

REPORT INFORMATION
  Report Type: 
  Country: None (occurrence: None)
  Receive Date: 20040623
  Receipt Date: 20040615
  Transmission Date: 20050107
  Serious: Yes (Hospitalization)
  Sender: FDA-Public Use
  Company Number: HQWYE479316JUN04

PATIENT
  Age: 65 Year
  Sex: Male
  Weight: 98.06 kg

DRUGS (2)
  1. EFFEXOR XR [Suspect]
     Indication: DEPRESSION
     Dosage: SEE IMAGE
     Route: 048
     Dates: start: 20040101, end: 20040610
  2. EFFEXOR XR [Suspect]
     Indication: DEPRESSION
     Dosage: SEE IMAGE
     Route: 048
     Dates: start: 20040101

REACTIONS (6)
  - ASTHENIA [None]
  - CIRCULATORY COLLAPSE [None]
  - COMMUNICATION DISORDER [None]
  - DRUG WITHDRAWAL SYNDROME [None]
  - FALL [None]
  - NARCOLEPSY [None]
